FAERS Safety Report 11051524 (Version 2)
Quarter: 2015Q2

REPORT INFORMATION
  Report Type: Spontaneous
  Country: US (occurrence: US)
  Receive Date: 20150421
  Receipt Date: 20150512
  Transmission Date: 20150821
  Serious: No
  Sender: FDA-Public Use
  Company Number: US-LEO PHARMA-233452

PATIENT
  Age: 66 Year
  Sex: Female

DRUGS (2)
  1. PICATO [Suspect]
     Active Substance: INGENOL MEBUTATE
     Indication: PRECANCEROUS SKIN LESION
     Route: 061
     Dates: start: 20150322, end: 20150324
  2. PICATO [Suspect]
     Active Substance: INGENOL MEBUTATE
     Indication: PRECANCEROUS SKIN LESION
     Route: 061
     Dates: start: 20150322, end: 20150323

REACTIONS (8)
  - Application site reaction [Recovered/Resolved]
  - Application site dryness [Recovered/Resolved]
  - Eye swelling [Recovered/Resolved]
  - Nasal oedema [Recovered/Resolved]
  - Inappropriate schedule of drug administration [Unknown]
  - Eye oedema [Recovered/Resolved]
  - Drug administered at inappropriate site [Unknown]
  - Application site pain [Recovered/Resolved]

NARRATIVE: CASE EVENT DATE: 20150324
